FAERS Safety Report 16856898 (Version 4)
Quarter: 2019Q4

REPORT INFORMATION
  Report Type: Spontaneous
  Country: US (occurrence: US)
  Receive Date: 20190926
  Receipt Date: 20191120
  Transmission Date: 20200122
  Serious: No
  Sender: FDA-Public Use
  Company Number: US-SHIRE-US201921042

PATIENT
  Sex: Male

DRUGS (4)
  1. GAMMAGARD [Suspect]
     Active Substance: HUMAN IMMUNOGLOBULIN G
     Dosage: 40 GRAM
     Route: 042
  2. GAMMAGARD [Suspect]
     Active Substance: HUMAN IMMUNOGLOBULIN G
     Indication: MULTIFOCAL MOTOR NEUROPATHY
     Dosage: UNK, 1X/WEEK
     Route: 042
     Dates: start: 2008
  3. GAMMAGARD [Suspect]
     Active Substance: HUMAN IMMUNOGLOBULIN G
     Dosage: 50 GRAM, 1X/WEEK
     Route: 042
  4. OXICAM (PIROXICAM) [Suspect]
     Active Substance: PIROXICAM
     Indication: MULTIFOCAL MOTOR NEUROPATHY
     Dosage: UNK
     Route: 065

REACTIONS (19)
  - Gait disturbance [Recovering/Resolving]
  - Condition aggravated [Unknown]
  - Affective disorder [Unknown]
  - Off label use [Unknown]
  - Muscular weakness [Recovering/Resolving]
  - Migraine with aura [Unknown]
  - Memory impairment [Unknown]
  - Arthralgia [Unknown]
  - Fall [Unknown]
  - Weight increased [Unknown]
  - Product dose omission [Unknown]
  - Inability to afford medication [Unknown]
  - Myalgia [Unknown]
  - Gait disturbance [Unknown]
  - Motor dysfunction [Recovering/Resolving]
  - Asthenia [Unknown]
  - Disturbance in attention [Unknown]
  - Influenza like illness [Unknown]
  - Fatigue [Unknown]
